FAERS Safety Report 17540554 (Version 2)
Quarter: 2020Q1

REPORT INFORMATION
  Report Type: Spontaneous
  Country: IT (occurrence: IT)
  Receive Date: 20200313
  Receipt Date: 20200323
  Transmission Date: 20200409
  Serious: Yes (Hospitalization)
  Sender: FDA-Public Use
  Company Number: IT-SHIRE-IT202009396

PATIENT

DRUGS (2)
  1. MESAVANCOL [Suspect]
     Active Substance: MESALAMINE
     Indication: DIVERTICULITIS
     Route: 048
  2. FLAGYL COMP [Concomitant]
     Indication: PRODUCT USED FOR UNKNOWN INDICATION

REACTIONS (4)
  - Product use in unapproved indication [Unknown]
  - Abdominal pain [Recovering/Resolving]
  - Diarrhoea [Recovering/Resolving]
  - Hyperglycaemia [Recovering/Resolving]

NARRATIVE: CASE EVENT DATE: 20190114
